FAERS Safety Report 4318080-0 (Version None)
Quarter: 2004Q1

REPORT INFORMATION
  Report Type: 
  Country: None (occurrence: None)
  Receive Date: 20040317
  Receipt Date: 20040220
  Transmission Date: 20041129
  Serious: Yes (Death, Other)
  Sender: FDA-Public Use
  Company Number: JP-BRISTOL-MYERS SQUIBB COMPANY-12513610

PATIENT
  Age: 74 Year
  Sex: Female

DRUGS (11)
  1. VEPESID [Suspect]
     Indication: CERVIX CARCINOMA
     Route: 048
     Dates: start: 20031111, end: 20040112
  2. DIAZEPAM [Suspect]
     Indication: NEUROSIS
     Route: 048
     Dates: end: 20040122
  3. CEPHARANTHINE [Concomitant]
     Route: 048
     Dates: start: 20031208, end: 20040122
  4. PREDONINE [Concomitant]
     Route: 048
     Dates: start: 20031222, end: 20040122
  5. GRAMALIL [Concomitant]
     Route: 048
     Dates: end: 20040122
  6. SERMION [Concomitant]
     Route: 048
     Dates: end: 20040122
  7. LIPITOR [Concomitant]
     Route: 048
     Dates: end: 20040122
  8. CLEANAL [Concomitant]
     Route: 048
     Dates: start: 20030922, end: 20040122
  9. LOXONIN [Concomitant]
     Route: 048
     Dates: start: 20031024, end: 20040122
  10. PURSENNID [Concomitant]
     Route: 048
     Dates: start: 20031222, end: 20040122
  11. STOGAR [Concomitant]
     Route: 048
     Dates: start: 20031222, end: 20040122

REACTIONS (11)
  - ABDOMINAL PAIN [None]
  - ANAEMIA [None]
  - BLOOD PRESSURE DECREASED [None]
  - CERVIX CARCINOMA [None]
  - CONDITION AGGRAVATED [None]
  - DISSEMINATED INTRAVASCULAR COAGULATION [None]
  - DYSPNOEA [None]
  - GENERAL PHYSICAL HEALTH DETERIORATION [None]
  - INTERSTITIAL LUNG DISEASE [None]
  - MALAISE [None]
  - MALIGNANT NEOPLASM PROGRESSION [None]
